FAERS Safety Report 5405071-1 (Version None)
Quarter: 2007Q3

REPORT INFORMATION
  Report Type: 
  Country: None (occurrence: None)
  Receive Date: 20070803
  Receipt Date: 20070726
  Transmission Date: 20080115
  Serious: Yes (Hospitalization)
  Sender: FDA-Public Use
  Company Number: FR-ASTRAZENECA-2007CG00901

PATIENT
  Age: 18349 Day
  Sex: Female

DRUGS (7)
  1. DIPRIVAN [Suspect]
     Indication: GENERAL ANAESTHESIA
     Route: 042
     Dates: start: 20070605, end: 20070605
  2. NAROPEINE [Suspect]
     Indication: LOCAL ANAESTHESIA
     Route: 053
     Dates: start: 20070605, end: 20070605
  3. SUFENTA [Suspect]
     Indication: GENERAL ANAESTHESIA
     Route: 042
     Dates: start: 20070605, end: 20070605
  4. HYPNOVEL [Suspect]
     Indication: GENERAL ANAESTHESIA
     Route: 042
     Dates: start: 20070605, end: 20070605
  5. MORPHINE [Suspect]
     Route: 042
     Dates: start: 20070605, end: 20070605
  6. PERFALGAN [Suspect]
     Route: 042
     Dates: start: 20070605, end: 20070605
  7. VALIUM [Suspect]
     Indication: CONVULSION
     Route: 042
     Dates: start: 20070605, end: 20070605

REACTIONS (2)
  - CONVULSION [None]
  - PARESIS [None]
